FAERS Safety Report 7998234-2 (Version None)
Quarter: 2011Q4

REPORT INFORMATION
  Report Type: 
  Country: None (occurrence: None)
  Receive Date: 20111221
  Receipt Date: 20110429
  Transmission Date: 20120403
  Serious: No
  Sender: FDA-Public Use
  Company Number: US-GLAXOSMITHKLINE-A0926169A

PATIENT
  Age: 67 Year
  Sex: Female
  Weight: 90 kg

DRUGS (5)
  1. RESTORIL [Concomitant]
     Indication: INSOMNIA
     Dosage: 7.5MG AT NIGHT
     Route: 048
  2. LOVAZA [Suspect]
     Indication: PRODUCT USED FOR UNKNOWN INDICATION
     Dosage: 1G SINGLE DOSE
     Route: 048
  3. PROZAC [Concomitant]
     Indication: PRODUCT USED FOR UNKNOWN INDICATION
     Dosage: 10MG PER DAY
     Route: 065
  4. IBUPROFEN [Concomitant]
     Indication: PAIN
     Dosage: 800MG PER DAY
     Route: 048
  5. VICODIN [Concomitant]
     Indication: PAIN
     Route: 048

REACTIONS (4)
  - GASTROINTESTINAL PAIN [None]
  - ERUCTATION [None]
  - MALAISE [None]
  - ABDOMINAL PAIN UPPER [None]
